FAERS Safety Report 4869924-5 (Version None)
Quarter: 2005Q4

REPORT INFORMATION
  Report Type: 
  Country: None (occurrence: None)
  Receive Date: 20051230
  Receipt Date: 20051005
  Transmission Date: 20060501
  Serious: Yes (Hospitalization, Other)
  Sender: FDA-Public Use
  Company Number: US-MERCK-0510USA04053

PATIENT
  Age: 56 Year
  Sex: Male
  Weight: 152 kg

DRUGS (6)
  1. VIOXX [Suspect]
     Indication: ARTHRITIS
     Route: 048
     Dates: start: 20000823, end: 20001223
  2. AMITRIPTYLINE HYDROCHLORIDE [Concomitant]
     Route: 065
  3. PREVACID [Concomitant]
     Route: 065
  4. ZYRTEC [Concomitant]
     Route: 065
  5. VASOTEC [Concomitant]
     Route: 065
  6. ALPRAZOLAM [Concomitant]
     Route: 065

REACTIONS (3)
  - PEPTIC ULCER [None]
  - PULMONARY EMBOLISM [None]
  - SLEEP APNOEA SYNDROME [None]
